FAERS Safety Report 10051408 (Version 1)
Quarter: 2014Q2

REPORT INFORMATION
  Report Type: Spontaneous
  Country: US (occurrence: US)
  Receive Date: 20140401
  Receipt Date: 20140401
  Transmission Date: 20141212
  Serious: No
  Sender: FDA-Public Use
  Company Number: US-PFIZER INC-2014090372

PATIENT
  Age: 51 Year
  Sex: Male
  Weight: 120 kg

DRUGS (1)
  1. SUTENT [Suspect]
     Indication: RENAL CELL CARCINOMA
     Dosage: 50 MG, DAILY
     Dates: start: 201312

REACTIONS (1)
  - Deep vein thrombosis [Not Recovered/Not Resolved]
